FAERS Safety Report 23335496 (Version 1)
Quarter: 2023Q4

REPORT INFORMATION
  Report Type: Other
  Country: CA (occurrence: None)
  Receive Date: 20231225
  Receipt Date: 20231225
  Transmission Date: 20240110
  Serious: Yes (Other)
  Sender: FDA-Public Use
  Company Number: CA-ROCHE-3117632

PATIENT
  Sex: Female

DRUGS (1)
  1. OCREVUS [Suspect]
     Active Substance: OCRELIZUMAB
     Indication: Relapsing-remitting multiple sclerosis
     Dosage: 300 MG AT DAY 0 AND 14, THEN 600 MG EVERY 6 MONTHS.
     Route: 042
     Dates: start: 20220531

REACTIONS (16)
  - Gait inability [Not Recovered/Not Resolved]
  - Pain in extremity [Not Recovered/Not Resolved]
  - Decreased appetite [Not Recovered/Not Resolved]
  - Asthenia [Not Recovered/Not Resolved]
  - Depression [Not Recovered/Not Resolved]
  - Balance disorder [Unknown]
  - Visual impairment [Unknown]
  - Gait disturbance [Unknown]
  - Malaise [Unknown]
  - Muscular weakness [Not Recovered/Not Resolved]
  - Pruritus [Unknown]
  - Decreased immune responsiveness [Unknown]
  - Abdominal distension [Unknown]
  - Musculoskeletal chest pain [Unknown]
  - Breast cancer [Not Recovered/Not Resolved]
  - JC polyomavirus test positive [Unknown]
